FAERS Safety Report 4685775-9 (Version None)
Quarter: 2005Q2

REPORT INFORMATION
  Report Type: 
  Country: None (occurrence: None)
  Receive Date: 20050607
  Receipt Date: 20050607
  Transmission Date: 20051028
  Serious: No
  Sender: FDA-Public Use
  Company Number: None

PATIENT
  Age: 17 Year
  Sex: Male

DRUGS (1)
  1. PAXIL [Suspect]
     Indication: OBSESSIVE-COMPULSIVE DISORDER
     Dosage: 30 MG PO BID
     Route: 048

REACTIONS (4)
  - ANGIONEUROTIC OEDEMA [None]
  - OBSESSIVE THOUGHTS [None]
  - PHARMACEUTICAL PRODUCT COMPLAINT [None]
  - RASH [None]
